FAERS Safety Report 23177823 (Version 1)
Quarter: 2023Q4

REPORT INFORMATION
  Report Type: Spontaneous
  Country: US (occurrence: US)
  Receive Date: 20231113
  Receipt Date: 20231113
  Transmission Date: 20240110
  Serious: No
  Sender: FDA-Public Use
  Company Number: US-PERRIGO-23US011111

PATIENT
  Age: 65 Year
  Sex: Female
  Weight: 68.027 kg

DRUGS (2)
  1. POLYETHYLENE GLYCOL 3350 [Suspect]
     Active Substance: POLYETHYLENE GLYCOL 3350
     Indication: Constipation prophylaxis
     Dosage: 17 G, QD
     Route: 048
     Dates: end: 20230903
  2. POLYETHYLENE GLYCOL 3350 [Suspect]
     Active Substance: POLYETHYLENE GLYCOL 3350
     Dosage: LESS THAN 17 G, QD
     Route: 048
     Dates: start: 20230904

REACTIONS (5)
  - Therapeutic product effect decreased [Unknown]
  - Incorrect product administration duration [Unknown]
  - Underdose [Unknown]
  - Wrong technique in product usage process [Unknown]
  - Off label use [Unknown]

NARRATIVE: CASE EVENT DATE: 20230904
